FAERS Safety Report 5156523-3 (Version None)
Quarter: 2006Q4

REPORT INFORMATION
  Report Type: 
  Country: None (occurrence: None)
  Receive Date: 20061115
  Receipt Date: 20061102
  Transmission Date: 20070319
  Serious: Yes (Other)
  Sender: FDA-Public Use
  Company Number: MC200600760

PATIENT
  Sex: Male

DRUGS (1)
  1. ANGIOMAX [Suspect]
     Indication: PERCUTANEOUS CORONARY INTERVENTION
     Dosage: UNK,
     Dates: start: 20061102, end: 20061102

REACTIONS (3)
  - CARDIAC PROCEDURE COMPLICATION [None]
  - FEMORAL ARTERY DISSECTION [None]
  - IATROGENIC INJURY [None]
